FAERS Safety Report 4523446-X (Version None)
Quarter: 2004Q4

REPORT INFORMATION
  Report Type: 
  Country: None (occurrence: None)
  Receive Date: 20041117
  Receipt Date: 20040519
  Transmission Date: 20050328
  Serious: Yes (Hospitalization)
  Sender: FDA-Public Use
  Company Number: US-JNJFOC-20040505179

PATIENT
  Age: 42 Year
  Sex: Female
  Weight: 96.1626 kg

DRUGS (4)
  1. LEVAQUIN [Suspect]
     Indication: KIDNEY INFECTION
     Dosage: 500 MG, INTRAVENOUS
     Route: 042
  2. LEVAQUIN [Suspect]
     Indication: KIDNEY INFECTION
     Dosage: 500 MG, ORAL
     Route: 048
  3. LODINE [Concomitant]
  4. SOMA [Concomitant]

REACTIONS (2)
  - PAIN [None]
  - VASCULITIS [None]
